FAERS Safety Report 7520546-7 (Version None)
Quarter: 2011Q2

REPORT INFORMATION
  Report Type: 
  Country: None (occurrence: None)
  Receive Date: 20110602
  Receipt Date: 20110520
  Transmission Date: 20111010
  Serious: Yes (Other)
  Sender: FDA-Public Use
  Company Number: PHHY2011US43989

PATIENT
  Sex: Female

DRUGS (3)
  1. SANDOSTATIN LAR [Suspect]
     Indication: METASTATIC CARCINOID TUMOUR
     Dosage: 20 MG, QMO
     Dates: end: 20100318
  2. SANDOSTATIN LAR [Suspect]
     Dates: start: 20100408
  3. SANDOSTATIN LAR [Suspect]
     Dosage: 30 MG, UNK
     Dates: start: 20101117

REACTIONS (3)
  - PELVIC PAIN [None]
  - HYPERTENSION [None]
  - NEOPLASM MALIGNANT [None]
